FAERS Safety Report 6543380-3 (Version None)
Quarter: 2010Q1

REPORT INFORMATION
  Report Type: 
  Country: None (occurrence: None)
  Receive Date: 20100120
  Receipt Date: 20100112
  Transmission Date: 20100710
  Serious: Yes (Other)
  Sender: FDA-Public Use
  Company Number: US-JNJFOC-20061100873

PATIENT
  Sex: Female

DRUGS (9)
  1. RISPERDAL [Suspect]
     Indication: MOOD SWINGS
     Route: 065
  2. RISPERDAL [Suspect]
     Indication: BIPOLAR DISORDER
     Route: 065
  3. RISPERDAL [Suspect]
     Indication: SLEEP DISORDER
     Route: 065
  4. ZYPREXA [Suspect]
     Indication: MOOD SWINGS
     Route: 065
  5. ZYPREXA [Suspect]
     Indication: BIPOLAR DISORDER
     Route: 065
  6. ZYPREXA [Suspect]
     Indication: SLEEP DISORDER
     Route: 065
  7. SEROQUEL [Suspect]
     Indication: MOOD SWINGS
     Route: 065
  8. SEROQUEL [Suspect]
     Indication: BIPOLAR DISORDER
     Route: 065
  9. SEROQUEL [Suspect]
     Indication: SLEEP DISORDER
     Route: 065

REACTIONS (2)
  - SEDATION [None]
  - TYPE 2 DIABETES MELLITUS [None]
